FAERS Safety Report 4375081-4 (Version None)
Quarter: 2004Q2

REPORT INFORMATION
  Report Type: 
  Country: None (occurrence: None)
  Receive Date: 20040603
  Receipt Date: 20040521
  Transmission Date: 20050107
  Serious: No
  Sender: FDA-Public Use
  Company Number: 2004UW10597

PATIENT
  Age: 70 Year
  Sex: Female

DRUGS (4)
  1. IRESSA [Suspect]
     Indication: SMALL CELL LUNG CANCER STAGE UNSPECIFIED
     Dosage: 250 MG PO
     Route: 048
     Dates: start: 20040325
  2. REGULAR INSULIN [Concomitant]
  3. INSULIN N [Concomitant]
  4. HYPERTENSION MEDICATION [Concomitant]

REACTIONS (5)
  - ASTHENIA [None]
  - CHEST PAIN [None]
  - DRUG INEFFECTIVE [None]
  - DYSPNOEA [None]
  - PULMONARY THROMBOSIS [None]
